FAERS Safety Report 17268320 (Version 1)
Quarter: 2020Q1

REPORT INFORMATION
  Report Type: Spontaneous
  Country: US (occurrence: US)
  Receive Date: 20200114
  Receipt Date: 20200114
  Transmission Date: 20200409
  Serious: No
  Sender: FDA-Public Use
  Company Number: US-009507513-2001USA002650

PATIENT
  Sex: Female

DRUGS (4)
  1. SINEMET [Suspect]
     Active Substance: CARBIDOPA\LEVODOPA
     Dosage: UNK
  2. SINEMET CR [Suspect]
     Active Substance: CARBIDOPA\LEVODOPA
     Dosage: UNK
  3. CARBIDOPA (+) LEVODOPA [Suspect]
     Active Substance: CARBIDOPA\LEVODOPA
     Dosage: UNK
  4. RYTARY [Suspect]
     Active Substance: CARBIDOPA\LEVODOPA
     Dosage: UNK

REACTIONS (10)
  - Musculoskeletal discomfort [Unknown]
  - Drug ineffective [Unknown]
  - Dyspepsia [Unknown]
  - Chest discomfort [Unknown]
  - Product availability issue [Unknown]
  - Disease progression [Unknown]
  - Hypoaesthesia [Unknown]
  - Adverse event [Unknown]
  - Palpitations [Unknown]
  - Cardiac disorder [Unknown]
